FAERS Safety Report 13391559 (Version 1)
Quarter: 2017Q1

REPORT INFORMATION
  Report Type: Spontaneous
  Country: US (occurrence: US)
  Receive Date: 20170331
  Receipt Date: 20170331
  Transmission Date: 20170429
  Serious: No
  Sender: FDA-Public Use
  Company Number: None

PATIENT
  Age: 72 Year
  Sex: Female
  Weight: 63.9 kg

DRUGS (4)
  1. PREMPRO [Concomitant]
     Active Substance: ESTROGENS, CONJUGATED\MEDROXYPROGESTERONE ACETATE
  2. LISINOPRIL. [Concomitant]
     Active Substance: LISINOPRIL
  3. LEVOTHYROZINE [Concomitant]
  4. LORAZEPAM 0.5MG TABLETS [Suspect]
     Active Substance: LORAZEPAM
     Indication: INSOMNIA
     Route: 048
     Dates: start: 20170213, end: 20170228

REACTIONS (7)
  - Insomnia [None]
  - Tinnitus [None]
  - Eye pain [None]
  - Confusional state [None]
  - Depression [None]
  - Ocular hyperaemia [None]
  - Product substitution issue [None]

NARRATIVE: CASE EVENT DATE: 20170214
